FAERS Safety Report 4952378-8 (Version None)
Quarter: 2006Q1

REPORT INFORMATION
  Report Type: 
  Country: None (occurrence: None)
  Receive Date: 20060320
  Receipt Date: 20060309
  Transmission Date: 20060701
  Serious: Yes (Other)
  Sender: FDA-Public Use
  Company Number: 2006033365

PATIENT
  Age: 16 Year
  Sex: Male

DRUGS (2)
  1. BENADRYL [Suspect]
     Indication: DELUSION
     Dosage: ^THE EQUIVALENT OF 600 MG^
     Dates: start: 20060307, end: 20060307
  2. ATOMOXETINE HYDROCHLORIDE (ATOMOXETINE HYDROCHLORIDE) [Concomitant]

REACTIONS (2)
  - HALLUCINATION, VISUAL [None]
  - INTENTIONAL DRUG MISUSE [None]
